FAERS Safety Report 10530775 (Version 2)
Quarter: 2014Q4

REPORT INFORMATION
  Report Type: Spontaneous
  Country: JP (occurrence: JP)
  Receive Date: 20141021
  Receipt Date: 20141021
  Transmission Date: 20150528
  Serious: Yes (Hospitalization)
  Sender: FDA-Public Use
  Company Number: JP-GLAXOSMITHKLINE-B1032254A

PATIENT
  Age: 29 Year
  Sex: Male

DRUGS (1)
  1. PAZOPANIB [Suspect]
     Active Substance: PAZOPANIB
     Indication: RENAL CELL CARCINOMA
     Dosage: 800 MG, QD
     Route: 048
     Dates: start: 20140723, end: 20140801

REACTIONS (7)
  - Rash generalised [Recovered/Resolved]
  - Urticaria [Unknown]
  - Dermatitis allergic [Recovered/Resolved]
  - Oral mucosal eruption [Recovered/Resolved]
  - Rash [Unknown]
  - Erythema [Recovered/Resolved]
  - Pruritus [Unknown]

NARRATIVE: CASE EVENT DATE: 20140731
